FAERS Safety Report 5847959-3 (Version None)
Quarter: 2008Q3

REPORT INFORMATION
  Report Type: 
  Country: None (occurrence: None)
  Receive Date: 20080818
  Receipt Date: 20080729
  Transmission Date: 20090109
  Serious: Yes (Hospitalization, Other)
  Sender: FDA-Public Use
  Company Number: US-BAYER-200829439NA

PATIENT
  Age: 41 Year
  Sex: Female

DRUGS (2)
  1. BETASERON [Suspect]
     Indication: DRUG USE FOR UNKNOWN INDICATION
     Dates: start: 19950401, end: 19960901
  2. AVONEX [Concomitant]
     Dates: start: 19960901, end: 19970101

REACTIONS (1)
  - SKIN NECROSIS [None]
